FAERS Safety Report 5677933-1 (Version None)
Quarter: 2008Q1

REPORT INFORMATION
  Report Type: 
  Country: None (occurrence: None)
  Receive Date: 20080319
  Receipt Date: 20080306
  Transmission Date: 20080703
  Serious: Yes (Other)
  Sender: FDA-Public Use
  Company Number: OPER20080046

PATIENT
  Sex: Female

DRUGS (1)
  1. OPANA ER [Suspect]
     Dosage: INTRA-NASAL
     Route: 045

REACTIONS (6)
  - DELUSIONAL PERCEPTION [None]
  - DRUG ABUSE [None]
  - EUPHORIC MOOD [None]
  - HALLUCINATION [None]
  - INTENTIONAL DRUG MISUSE [None]
  - PSEUDOPARALYSIS [None]
